FAERS Safety Report 24347988 (Version 1)
Quarter: 2024Q3

REPORT INFORMATION
  Report Type: Spontaneous
  Country: US (occurrence: US)
  Receive Date: 20240923
  Receipt Date: 20240923
  Transmission Date: 20241016
  Serious: Yes (Hospitalization, Other)
  Sender: NOVO NORDISK
  Company Number: US-NOVOPROD-1283257

PATIENT
  Age: 61 Year
  Sex: Female

DRUGS (1)
  1. OZEMPIC [Suspect]
     Active Substance: SEMAGLUTIDE
     Indication: Type 2 diabetes mellitus
     Dosage: 1 MG WEEKLY
     Route: 058
     Dates: start: 20240604, end: 20240726

REACTIONS (12)
  - Septic shock [Unknown]
  - Intestinal ischaemia [Not Recovered/Not Resolved]
  - Loss of consciousness [Unknown]
  - Acute kidney injury [Unknown]
  - Anaemia [Unknown]
  - Pulmonary embolism [Unknown]
  - Intestinal resection [Unknown]
  - Necrosis [Unknown]
  - Deep vein thrombosis [Unknown]
  - Intestinal obstruction [Not Recovered/Not Resolved]
  - Gastrointestinal haemorrhage [Unknown]
  - Pancreatic disorder [Unknown]

NARRATIVE: CASE EVENT DATE: 20240726
